FAERS Safety Report 21281736 (Version 4)
Quarter: 2022Q4

REPORT INFORMATION
  Report Type: Report from Study
  Country: SE (occurrence: SE)
  Receive Date: 20220901
  Receipt Date: 20221010
  Transmission Date: 20230113
  Serious: Yes (Hospitalization, Other)
  Sender: FDA-Public Use
  Company Number: SE-ABBVIE-22K-150-4522746-00

PATIENT
  Age: 76 Year
  Sex: Female
  Weight: 54 kg

DRUGS (6)
  1. CARBIDOPA\LEVODOPA [Suspect]
     Active Substance: CARBIDOPA\LEVODOPA
     Indication: Parkinson^s disease
     Dosage: CURRENT DOSAGES: MORNING DOSE 2 ML, CONTINUOUS DOSE 1.4 ML/H, EXTRA DOSE 0.8 ML , NIGHT DOSE 1.3ML
     Dates: start: 20220829
  2. CARBIDOPA\LEVODOPA [Suspect]
     Active Substance: CARBIDOPA\LEVODOPA
     Dosage: THERAPY DURATION: REMAINS AT 24 H.
     Route: 050
     Dates: start: 20220329, end: 2022
  3. CARBIDOPA\LEVODOPA [Suspect]
     Active Substance: CARBIDOPA\LEVODOPA
     Dosage: CURRENT DOSAGES: MORNING DOSE 2.0ML, CONTINUOUS DOSE DAY 1.4 ML/H, EXTRA DOSE DAY 0.8ML
     Route: 050
     Dates: start: 20220906
  4. CARBIDOPA\LEVODOPA [Suspect]
     Active Substance: CARBIDOPA\LEVODOPA
     Dosage: CURRENT DOSAGES: CONTINUOUS DOSE NIGHT 1.3 ML/H, EXTRA DOSE NIGHT 0.8ML
     Route: 050
     Dates: start: 20220906
  5. CARBIDOPA\LEVODOPA [Suspect]
     Active Substance: CARBIDOPA\LEVODOPA
     Dosage: THERAPY DURATION: REMAINS AT 24 H.
     Dates: start: 20220329
  6. TINZAPARIN SODIUM [Concomitant]
     Active Substance: TINZAPARIN SODIUM
     Indication: Product used for unknown indication
     Dosage: 10000 ANTI-XA IU

REACTIONS (6)
  - Femoral neck fracture [Recovering/Resolving]
  - Venous thrombosis limb [Recovering/Resolving]
  - Anaemia [Unknown]
  - Fall [Unknown]
  - Rib fracture [Recovering/Resolving]
  - Parkinson^s disease [Unknown]

NARRATIVE: CASE EVENT DATE: 20220701
